FAERS Safety Report 10015932 (Version 1)
Quarter: 2014Q1

REPORT INFORMATION
  Report Type: Spontaneous
  Country: ES (occurrence: ES)
  Receive Date: 20140317
  Receipt Date: 20140317
  Transmission Date: 20141002
  Serious: Yes (Other)
  Sender: FDA-Public Use
  Company Number: ES-BRISTOL-MYERS SQUIBB COMPANY-20416996

PATIENT
  Sex: Male

DRUGS (1)
  1. ELIQUIS [Suspect]
     Dosage: DOSE REDUCED TO 2.5MG

REACTIONS (1)
  - Surgery [Unknown]
